FAERS Safety Report 17205769 (Version 1)
Quarter: 2019Q4

REPORT INFORMATION
  Report Type: Spontaneous
  Country: GB (occurrence: GB)
  Receive Date: 20191227
  Receipt Date: 20191227
  Transmission Date: 20200122
  Serious: Yes (Other)
  Sender: FDA-Public Use
  Company Number: GB-TEVA-2019-GB-1157658

PATIENT
  Age: 39 Year
  Sex: Male
  Weight: 88.9 kg

DRUGS (2)
  1. FEXOFENADINE HYDROCHLORIDE. [Suspect]
     Active Substance: FEXOFENADINE HYDROCHLORIDE
     Indication: RHINITIS ALLERGIC
     Dosage: 120MG
     Route: 048
     Dates: start: 20191102, end: 20191102
  2. IRBESARTAN. [Concomitant]
     Active Substance: IRBESARTAN

REACTIONS (3)
  - Somnolence [Unknown]
  - Dizziness [Recovered/Resolved with Sequelae]
  - Disturbance in attention [Unknown]

NARRATIVE: CASE EVENT DATE: 20191103
